FAERS Safety Report 12808085 (Version 1)
Quarter: 2016Q4

REPORT INFORMATION
  Report Type: Spontaneous
  Country: US (occurrence: US)
  Receive Date: 20161004
  Receipt Date: 20161004
  Transmission Date: 20170207
  Serious: No
  Sender: FDA-Public Use
  Company Number: US-BEH-2016073813

PATIENT
  Age: 10 Year
  Sex: Female

DRUGS (1)
  1. STIMATE [Suspect]
     Active Substance: DESMOPRESSIN ACETATE
     Indication: VON WILLEBRAND^S DISEASE
     Dosage: 150 ?G, PRN
     Route: 045
     Dates: start: 20140707

REACTIONS (3)
  - Mood altered [Unknown]
  - Irritability [Unknown]
  - Erythema [Unknown]

NARRATIVE: CASE EVENT DATE: 20160926
